FAERS Safety Report 23966831 (Version 1)
Quarter: 2024Q2

REPORT INFORMATION
  Report Type: Spontaneous
  Country: CA (occurrence: CA)
  Receive Date: 20240612
  Receipt Date: 20240612
  Transmission Date: 20240716
  Serious: Yes (Hospitalization)
  Sender: FDA-Public Use
  Company Number: CA-PFIZER INC-202400189360

PATIENT
  Age: 52 Year
  Sex: Female
  Weight: 70 kg

DRUGS (8)
  1. MEKTOVI [Suspect]
     Active Substance: BINIMETINIB
     Indication: Metastatic malignant melanoma
     Dosage: 45 MG, 2X/DAY
     Route: 048
  2. BRAFTOVI [Suspect]
     Active Substance: ENCORAFENIB
     Indication: Metastatic malignant melanoma
     Dosage: 450 MG, 1X/DAY
     Route: 048
  3. CELECOXIB [Concomitant]
     Active Substance: CELECOXIB
  4. GABAPENTIN [Concomitant]
     Active Substance: GABAPENTIN
  5. MORPHINE [Concomitant]
     Active Substance: MORPHINE
  6. POLYETHYLENE GLYCOLS [Concomitant]
     Active Substance: POLYETHYLENE GLYCOLS
  7. VITAMIN D NOS [Concomitant]
     Active Substance: CHOLECALCIFEROL\ERGOCALCIFEROL
  8. ZOLEDRONIC ACID [Concomitant]
     Active Substance: ZOLEDRONIC ACID

REACTIONS (6)
  - Acute kidney injury [Recovered/Resolved]
  - Generalised oedema [Recovered/Resolved]
  - Hyperkalaemia [Recovered/Resolved]
  - Intensive care [Recovered/Resolved]
  - Respiratory distress [Recovered/Resolved]
  - Tumour lysis syndrome [Recovered/Resolved]
